FAERS Safety Report 20735504 (Version 1)
Quarter: 2022Q2

REPORT INFORMATION
  Report Type: Report from Study
  Country: NL (occurrence: None)
  Receive Date: 20220421
  Receipt Date: 20220421
  Transmission Date: 20220721
  Serious: Yes (Hospitalization)
  Sender: FDA-Public Use
  Company Number: NL-ROCHE-3075105

PATIENT
  Age: 62 Year

DRUGS (4)
  1. PACLITAXEL [Suspect]
     Active Substance: PACLITAXEL
     Indication: Breast cancer
     Dosage: MOST RECENT DOSE ADMINISTRATED 09/JUN/2020
     Route: 042
     Dates: start: 20200519
  2. CARBOPLATIN [Suspect]
     Active Substance: CARBOPLATIN
     Indication: Breast cancer
     Dosage: 6AUC, ?MOST RECENT DOSE ADMINISTRATED 09/JUN/2020
     Route: 042
     Dates: start: 20200519
  3. PERTUZUMAB [Suspect]
     Active Substance: PERTUZUMAB
     Indication: Breast cancer
     Dosage: MOST RECENT DOSE ADMINISTRATED 09/JUN/2020
     Route: 042
     Dates: start: 20200519
  4. TRASTUZUMAB [Suspect]
     Active Substance: TRASTUZUMAB
     Indication: Breast cancer
     Dosage: MOST RECENT DOSE ADMINISTRATED 09/JUN/2020
     Route: 042
     Dates: start: 20200519

REACTIONS (1)
  - Chest pain [Recovered/Resolved]

NARRATIVE: CASE EVENT DATE: 20200608
